FAERS Safety Report 9203840 (Version 1)
Quarter: 2013Q2

REPORT INFORMATION
  Report Type: Spontaneous
  Country: FR (occurrence: FR)
  Receive Date: 20130402
  Receipt Date: 20130402
  Transmission Date: 20140414
  Serious: Yes (Hospitalization, Other)
  Sender: FDA-Public Use
  Company Number: FR-PFIZER INC-2013103686

PATIENT
  Age: 78 Year
  Sex: Male

DRUGS (9)
  1. CORDARONE [Suspect]
     Dosage: 200 MG 5 TIMES WEEKLY
     Route: 048
     Dates: start: 20121206
  2. KARDEGIC [Interacting]
     Indication: ANGINA PECTORIS
     Dosage: 75 MG, DAILY
     Route: 048
     Dates: start: 20121106, end: 20121211
  3. PLAVIX [Interacting]
     Indication: ANGINA PECTORIS
     Dosage: 75 MG, DAILY
     Route: 048
     Dates: start: 20121106, end: 20121211
  4. PRADAXA [Interacting]
     Indication: ATRIAL FIBRILLATION
     Dosage: 220 MG DAILY
     Route: 048
     Dates: start: 20121206, end: 20121211
  5. LASILIX [Concomitant]
     Dosage: UNK
     Dates: start: 20121206
  6. APROVEL [Concomitant]
     Dosage: UNK
     Dates: start: 20121206
  7. TAHOR [Concomitant]
     Dosage: UNK
  8. CARDENSIEL [Concomitant]
     Dosage: UNK
  9. INEXIUM [Concomitant]
     Dosage: UNK

REACTIONS (3)
  - Drug interaction [Recovering/Resolving]
  - Rectal haemorrhage [Recovering/Resolving]
  - Colitis ischaemic [Recovering/Resolving]
